FAERS Safety Report 13506757 (Version 1)
Quarter: 2017Q2

REPORT INFORMATION
  Report Type: Spontaneous
  Country: US (occurrence: US)
  Receive Date: 20170502
  Receipt Date: 20170502
  Transmission Date: 20170830
  Serious: Yes (Other)
  Sender: FDA-Public Use
  Company Number: US-TEVA-764566USA

PATIENT
  Age: 73 Year
  Sex: Female
  Weight: 50.85 kg

DRUGS (1)
  1. NUVIGIL [Suspect]
     Active Substance: ARMODAFINIL
     Indication: BRAIN OPERATION
     Dates: start: 2000

REACTIONS (7)
  - Muscle tightness [Not Recovered/Not Resolved]
  - Drug prescribing error [Unknown]
  - Product use in unapproved indication [Unknown]
  - Hip arthroplasty [Unknown]
  - Wrist fracture [Unknown]
  - Arthralgia [Unknown]
  - Incorrect dosage administered [Unknown]

NARRATIVE: CASE EVENT DATE: 201607
